FAERS Safety Report 7404196-9 (Version None)
Quarter: 2011Q2

REPORT INFORMATION
  Report Type: 
  Country: None (occurrence: None)
  Receive Date: 20110408
  Receipt Date: 20110405
  Transmission Date: 20111010
  Serious: Yes (Hospitalization, Other)
  Sender: FDA-Public Use
  Company Number: US-BAYER-2011-001230

PATIENT
  Age: 49 Year
  Sex: Female

DRUGS (3)
  1. REMERON [Concomitant]
     Indication: DEPRESSION
     Dosage: 30 MG, QD
  2. BETAFERON [Suspect]
     Indication: RELAPSING-REMITTING MULTIPLE SCLEROSIS
     Dosage: 8 MIU, QOD
     Route: 058
     Dates: start: 20100421, end: 20101226
  3. SEROQUEL [Concomitant]
     Indication: DEPRESSION
     Dosage: 100 MG, QD

REACTIONS (9)
  - GASTROINTESTINAL NECROSIS [None]
  - BOWEL MOVEMENT IRREGULARITY [None]
  - DEPRESSION [None]
  - ABDOMINAL RIGIDITY [None]
  - INFECTION [None]
  - ASTHENIA [None]
  - CARDIOVASCULAR DISORDER [None]
  - ABDOMINAL PAIN [None]
  - INTESTINAL FUNCTIONAL DISORDER [None]
